FAERS Safety Report 25500724 (Version 1)
Quarter: 2025Q3

REPORT INFORMATION
  Report Type: Spontaneous
  Country: US (occurrence: US)
  Receive Date: 20250701
  Receipt Date: 20250701
  Transmission Date: 20251021
  Serious: Yes (Life-Threatening, Hospitalization)
  Sender: PFIZER
  Company Number: US-PFIZER INC-PV202500077826

PATIENT
  Age: 65 Year
  Sex: Female
  Weight: 58.1 kg

DRUGS (1)
  1. SIROLIMUS [Suspect]
     Active Substance: SIROLIMUS
     Indication: Graft versus host disease
     Dosage: ON MONDAYS, WEDNESDAYS, AND FRIDAYS
     Route: 048

REACTIONS (1)
  - Hypertriglyceridaemia [Recovered/Resolved]
